FAERS Safety Report 5850136-3 (Version None)
Quarter: 2008Q3

REPORT INFORMATION
  Report Type: 
  Country: None (occurrence: None)
  Receive Date: 20080819
  Receipt Date: 20080811
  Transmission Date: 20090109
  Serious: No
  Sender: FDA-Public Use
  Company Number: US-BOEHRINGER INGELHEIM GMBH, GERMANY-2008-BP-12648BP

PATIENT
  Age: 64 Year
  Sex: Male

DRUGS (8)
  1. FLOMAX [Suspect]
     Indication: POLLAKIURIA
     Route: 048
     Dates: start: 20080801
  2. FLOMAX [Suspect]
     Route: 048
     Dates: start: 20080808
  3. HYTRIN [Concomitant]
     Route: 048
  4. COUMADIN [Concomitant]
     Route: 048
  5. FUROSEMIDE [Concomitant]
  6. TOPROL-XL [Concomitant]
  7. NORVASC [Concomitant]
  8. ZESTRIL [Concomitant]

REACTIONS (1)
  - DRUG INEFFECTIVE [None]
